FAERS Safety Report 24309101 (Version 1)
Quarter: 2024Q3

REPORT INFORMATION
  Report Type: Spontaneous
  Country: CN (occurrence: CN)
  Receive Date: 20240911
  Receipt Date: 20240911
  Transmission Date: 20241016
  Serious: Yes (Life-Threatening, Hospitalization)
  Sender: ELI LILLY AND CO
  Company Number: CN-Merck Healthcare KGaA-2024047878

PATIENT
  Age: 70 Year
  Sex: Male
  Weight: 66 kg

DRUGS (6)
  1. ERBITUX [Suspect]
     Active Substance: CETUXIMAB
     Indication: Colon cancer metastatic
     Dosage: 18 MG, UNKNOWN
     Route: 041
     Dates: start: 20240902, end: 20240902
  2. ERBITUX [Suspect]
     Active Substance: CETUXIMAB
     Dosage: 117 MG, UNKNOWN
     Route: 041
     Dates: start: 20240902, end: 20240902
  3. ERBITUX [Suspect]
     Active Substance: CETUXIMAB
     Dosage: 765 MG, UNKNOWN
     Route: 041
     Dates: start: 20240902, end: 20240902
  4. SODIUM CHLORIDE [Concomitant]
     Active Substance: SODIUM CHLORIDE
     Indication: Medication dilution
     Dosage: 250 MG, DAILY
     Route: 041
     Dates: start: 20240902, end: 20240902
  5. SODIUM CHLORIDE [Concomitant]
     Active Substance: SODIUM CHLORIDE
     Dosage: 250 MG, DAILY
     Route: 041
     Dates: start: 20240902, end: 20240902
  6. SODIUM CHLORIDE [Concomitant]
     Active Substance: SODIUM CHLORIDE
     Dosage: 250 MG, DAILY
     Route: 041
     Dates: start: 20240902, end: 20240902

REACTIONS (6)
  - Dizziness [Recovering/Resolving]
  - Hypersensitivity [Recovering/Resolving]
  - Swelling face [Recovering/Resolving]
  - Amaurosis [Recovering/Resolving]
  - Cough [Recovering/Resolving]
  - Erythema [Recovering/Resolving]

NARRATIVE: CASE EVENT DATE: 20240902
